FAERS Safety Report 8972718 (Version 2)
Quarter: 2013Q1

REPORT INFORMATION
  Report Type: Spontaneous
  Country: US (occurrence: US)
  Receive Date: 20121219
  Receipt Date: 20130318
  Transmission Date: 20140127
  Serious: Yes (Life-Threatening, Hospitalization)
  Sender: FDA-Public Use
  Company Number: US-BAYER-2012-132405

PATIENT
  Age: 21 Year
  Sex: Female
  Weight: 58.96 kg

DRUGS (4)
  1. YAZ [Suspect]
     Indication: CONTRACEPTION
     Dosage: UNK
     Dates: start: 200801, end: 200805
  2. YAZ [Suspect]
     Indication: ACNE
  3. MORPHINE [Concomitant]
  4. NSAID^S [Concomitant]
     Dosage: OTC, PRN

REACTIONS (1)
  - Pulmonary embolism [None]
